FAERS Safety Report 14958155 (Version 1)
Quarter: 2018Q2

REPORT INFORMATION
  Report Type: Report from Study
  Country: FR (occurrence: FR)
  Receive Date: 20180531
  Receipt Date: 20180531
  Transmission Date: 20180711
  Serious: Yes (Other)
  Sender: FDA-Public Use
  Company Number: PHHY2018FR010278

PATIENT
  Age: 5 Year
  Sex: Male
  Weight: 9.9 kg

DRUGS (1)
  1. OMNITROPE [Suspect]
     Active Substance: SOMATROPIN
     Indication: SMALL FOR DATES BABY
     Dosage: 0.3 MG, QD (10 MG/ 1.5 ML)
     Route: 058
     Dates: start: 20141202, end: 20160201

REACTIONS (3)
  - Chest pain [Unknown]
  - Palpitations [Unknown]
  - Electrocardiogram QT prolonged [Not Recovered/Not Resolved]

NARRATIVE: CASE EVENT DATE: 201501
